FAERS Safety Report 5053944-4 (Version None)
Quarter: 2006Q3

REPORT INFORMATION
  Report Type: 
  Country: None (occurrence: None)
  Receive Date: 20060718
  Receipt Date: 20060711
  Transmission Date: 20061208
  Serious: Yes (Hospitalization, Disabling, Other)
  Sender: FDA-Public Use
  Company Number: US-MERCK-0607USA01817

PATIENT
  Age: 90 Year
  Sex: Male

DRUGS (11)
  1. ZOCOR [Suspect]
     Indication: BLOOD CHOLESTEROL INCREASED
     Route: 048
     Dates: start: 20060201, end: 20060422
  2. GLIPIZIDE [Concomitant]
     Route: 065
  3. LISINOPRIL [Concomitant]
     Route: 065
  4. DILTIAZEM CD [Concomitant]
     Route: 065
  5. GEMFIBROZIL [Concomitant]
     Route: 065
  6. PLAVIX [Concomitant]
     Route: 065
  7. PRILOSEC [Concomitant]
     Route: 065
  8. ALBUTEROL [Concomitant]
     Route: 065
  9. FORMOTEROL FUMARATE [Concomitant]
     Route: 065
  10. AEROBID [Concomitant]
     Route: 065
  11. ETODOLAC [Concomitant]
     Route: 065

REACTIONS (7)
  - ASPARTATE AMINOTRANSFERASE INCREASED [None]
  - BLOOD CREATINE PHOSPHOKINASE INCREASED [None]
  - BLOOD CREATINE PHOSPHOKINASE MB INCREASED [None]
  - MUSCULAR WEAKNESS [None]
  - MYALGIA [None]
  - MYOGLOBINURIA [None]
  - RENAL FAILURE [None]
